FAERS Safety Report 22144439 (Version 1)
Quarter: 2023Q1

REPORT INFORMATION
  Report Type: Spontaneous
  Country: US (occurrence: US)
  Receive Date: 20230328
  Receipt Date: 20230328
  Transmission Date: 20230417
  Serious: No
  Sender: FDA-Public Use
  Company Number: US-002147023-NVSC2023US069612

PATIENT
  Age: 13 Year
  Sex: Female

DRUGS (2)
  1. METHYLPHENIDATE [Suspect]
     Active Substance: METHYLPHENIDATE
     Indication: Attention deficit hyperactivity disorder
     Dosage: UNK, 2 YEARS AGO, ORAL SOLUTIONTID
     Route: 065
  2. QUILLIVANT XR [Suspect]
     Active Substance: METHYLPHENIDATE HYDROCHLORIDE
     Indication: Attention deficit hyperactivity disorder
     Dosage: 6 ML, QD, 3 YEARS AGO
     Route: 048

REACTIONS (1)
  - Drug ineffective [Unknown]
